FAERS Safety Report 6808101-5 (Version None)
Quarter: 2010Q2

REPORT INFORMATION
  Report Type: 
  Country: None (occurrence: None)
  Receive Date: 20100629
  Receipt Date: 20090616
  Transmission Date: 20101027
  Serious: No
  Sender: FDA-Public Use
  Company Number: US-PFIZER INC-2009184328

PATIENT
  Sex: Female
  Weight: 102 kg

DRUGS (7)
  1. REVATIO [Suspect]
     Indication: PULMONARY HYPERTENSION
     Dosage: 20 MG, 1X/DAY
     Route: 048
     Dates: start: 20090310
  2. METOPROLOL TARTRATE [Concomitant]
     Dosage: UNK
  3. ZOCOR [Concomitant]
     Dosage: UNK
  4. LEXAPRO [Concomitant]
     Dosage: UNK
  5. ALPRAZOLAM [Concomitant]
     Dosage: UNK
  6. POTASSIUM [Concomitant]
     Dosage: UNK
  7. FUROSEMIDE [Concomitant]
     Dosage: UNK

REACTIONS (3)
  - DIZZINESS [None]
  - FLUSHING [None]
  - SOMNOLENCE [None]
